FAERS Safety Report 22705753 (Version 7)
Quarter: 2024Q4

REPORT INFORMATION
  Report Type: Report from Study
  Country: US (occurrence: US)
  Receive Date: 20230714
  Receipt Date: 20241015
  Transmission Date: 20250114
  Serious: Yes (Hospitalization, Other)
  Sender: TAKEDA
  Company Number: US-TAKEDA-2022TUS052561

PATIENT
  Age: 56 Year
  Sex: Male

DRUGS (4)
  1. HUMAN IMMUNOGLOBULIN G [Suspect]
     Active Substance: HUMAN IMMUNOGLOBULIN G
     Indication: Primary immunodeficiency syndrome
     Dosage: UNK
     Route: 065
  2. HUMAN IMMUNOGLOBULIN G [Suspect]
     Active Substance: HUMAN IMMUNOGLOBULIN G
     Indication: Immunodeficiency common variable
     Dosage: 14 GRAM, 1/WEEK
     Route: 058
  3. HUMAN IMMUNOGLOBULIN G [Suspect]
     Active Substance: HUMAN IMMUNOGLOBULIN G
     Dosage: UNK
     Route: 058
  4. HYQVIA [Suspect]
     Active Substance: HUMAN IMMUNOGLOBULIN G\HYALURONIDASE (HUMAN RECOMBINANT)
     Indication: Immunodeficiency common variable
     Dosage: UNK
     Route: 065

REACTIONS (16)
  - Septic shock [Unknown]
  - Patella fracture [Unknown]
  - Colitis ulcerative [Unknown]
  - Plasma cell myeloma [Unknown]
  - Cellulitis [Recovering/Resolving]
  - Fatigue [Unknown]
  - Sinusitis [Unknown]
  - Oropharyngeal candidiasis [Unknown]
  - Proctitis [Unknown]
  - Scratch [Recovering/Resolving]
  - Restless legs syndrome [Unknown]
  - Protein total increased [Unknown]
  - Weight decreased [Unknown]
  - Muscle twitching [Unknown]
  - Headache [Unknown]
  - Nausea [Unknown]

NARRATIVE: CASE EVENT DATE: 20240814
